FAERS Safety Report 8242723-2 (Version None)
Quarter: 2012Q1

REPORT INFORMATION
  Report Type: 
  Country: None (occurrence: None)
  Receive Date: 20120329
  Receipt Date: 20120322
  Transmission Date: 20120608
  Serious: Yes (Life-Threatening, Hospitalization)
  Sender: FDA-Public Use
  Company Number: FR-SANOFI-AVENTIS-2012SA007385

PATIENT
  Age: 87 Year
  Sex: Female
  Weight: 81 kg

DRUGS (9)
  1. OMEPRAZOLE [Concomitant]
     Route: 048
  2. ALPRAZOLAM [Concomitant]
     Dosage: 0.25 MG/01 DF IN THE MORNING AND 02 DF IN THE EVENING
     Route: 048
  3. ALDALIX [Concomitant]
     Route: 048
  4. FERROUS SULFATE TAB [Concomitant]
     Route: 048
     Dates: start: 20120118, end: 20120124
  5. MIRTAZAPINE [Concomitant]
     Route: 048
  6. AMITRIPTYLINE HCL [Concomitant]
     Route: 048
  7. FRAGMIN [Suspect]
     Indication: THROMBOSIS PROPHYLAXIS
     Dates: end: 20120117
  8. ZOPICLONE [Concomitant]
     Route: 048
  9. LOVENOX [Suspect]
     Indication: THROMBOSIS PROPHYLAXIS
     Route: 058
     Dates: start: 20120117, end: 20120225

REACTIONS (5)
  - CYTOLYTIC HEPATITIS [None]
  - INFLUENZA LIKE ILLNESS [None]
  - HEPARIN-INDUCED THROMBOCYTOPENIA [None]
  - INFLAMMATION [None]
  - CIRCULATORY COLLAPSE [None]
